FAERS Safety Report 6416076-6 (Version None)
Quarter: 2009Q4

REPORT INFORMATION
  Report Type: 
  Country: None (occurrence: None)
  Receive Date: 20091027
  Receipt Date: 20091016
  Transmission Date: 20100525
  Serious: Yes (Death, Hospitalization, Other)
  Sender: FDA-Public Use
  Company Number: US-AMGEN-US369705

PATIENT
  Sex: Female
  Weight: 72 kg

DRUGS (7)
  1. NPLATE [Suspect]
     Indication: IDIOPATHIC THROMBOCYTOPENIC PURPURA
     Route: 058
     Dates: start: 20091009, end: 20091009
  2. BUMEX [Concomitant]
     Route: 065
  3. DECADRON [Concomitant]
     Route: 065
  4. DIGOXIN [Concomitant]
     Route: 065
  5. CARDIZEM [Concomitant]
     Route: 065
  6. INSULIN [Concomitant]
     Route: 065
  7. METOPROLOL [Concomitant]
     Route: 065

REACTIONS (2)
  - DEATH [None]
  - HAEMORRHAGE INTRACRANIAL [None]
